FAERS Safety Report 7717955-X (Version None)
Quarter: 2011Q3

REPORT INFORMATION
  Report Type: 
  Country: None (occurrence: None)
  Receive Date: 20110830
  Receipt Date: 20110504
  Transmission Date: 20111222
  Serious: Yes (Other)
  Sender: FDA-Public Use
  Company Number: US-AMGEN-USASP2011020704

PATIENT
  Sex: Female
  Weight: 54.422 kg

DRUGS (6)
  1. FERREX [Concomitant]
     Dosage: 150 MG, QD
  2. MULTI-VITAMINS [Concomitant]
     Dosage: D
     Route: 048
  3. AMICAR [Concomitant]
     Dosage: 500 MG, PRN
  4. EPIDUO [Concomitant]
     Dosage: UNK UNK, PRN
     Route: 061
  5. NPLATE [Suspect]
     Indication: THROMBOCYTOPENIA
     Dosage: 2 A?G/KG, QWK
     Route: 058
     Dates: start: 20100709, end: 20101020
  6. AZURETTE [Concomitant]
     Dosage: UNK UNK, QD
     Route: 048

REACTIONS (1)
  - DRUG INEFFECTIVE [None]
